FAERS Safety Report 13877390 (Version 2)
Quarter: 2017Q4

REPORT INFORMATION
  Report Type: Spontaneous
  Country: US (occurrence: US)
  Receive Date: 20170817
  Receipt Date: 20171026
  Transmission Date: 20180320
  Serious: Yes (Other)
  Sender: FDA-Public Use
  Company Number: US-NOVOPROD-558533

PATIENT
  Age: 60 Year
  Sex: Female

DRUGS (2)
  1. HUMALOG [Concomitant]
     Active Substance: INSULIN LISPRO
     Indication: TYPE 2 DIABETES MELLITUS
     Dosage: UNK
     Route: 058
  2. LEVEMIR [Suspect]
     Active Substance: INSULIN DETEMIR
     Indication: TYPE 2 DIABETES MELLITUS
     Dosage: 74 UNK, UNK
     Route: 058
     Dates: start: 2012, end: 201707

REACTIONS (6)
  - Blood glucose increased [Not Recovered/Not Resolved]
  - Weight increased [Recovered/Resolved]
  - Diabetic retinopathy [Recovered/Resolved]
  - Increased appetite [Recovered/Resolved]
  - Injection site induration [Not Recovered/Not Resolved]
  - Glycosylated haemoglobin increased [Not Recovered/Not Resolved]

NARRATIVE: CASE EVENT DATE: 201701
